FAERS Safety Report 6526564-X (Version None)
Quarter: 2010Q1

REPORT INFORMATION
  Report Type: 
  Country: None (occurrence: None)
  Receive Date: 20100105
  Receipt Date: 20091222
  Transmission Date: 20100710
  Serious: Yes (Hospitalization, Other)
  Sender: FDA-Public Use
  Company Number: JP-BAYER-200913034BYL

PATIENT
  Age: 68 Year
  Sex: Female
  Weight: 45 kg

DRUGS (7)
  1. NEXAVAR [Suspect]
     Indication: RENAL CELL CARCINOMA
     Dosage: TOTAL DAILY DOSE: 800 MG  UNIT DOSE: 200 MG
     Route: 048
     Dates: start: 20090722, end: 20090801
  2. NEXAVAR [Suspect]
     Dosage: TOTAL DAILY DOSE: 400 MG  UNIT DOSE: 200 MG
     Route: 048
     Dates: start: 20090820, end: 20090821
  3. PARIET [Concomitant]
     Route: 048
  4. PURSENNID [Concomitant]
     Route: 048
  5. BLOPRESS [Concomitant]
     Route: 048
  6. MUCOSTA [Concomitant]
     Route: 048
     Dates: start: 20090803
  7. LOXONIN [Concomitant]
     Route: 048
     Dates: start: 20090803

REACTIONS (2)
  - ANAPHYLACTIC SHOCK [None]
  - ERYTHEMA MULTIFORME [None]
